FAERS Safety Report 19614245 (Version 1)
Quarter: 2021Q3

REPORT INFORMATION
  Report Type: Spontaneous
  Country: US (occurrence: US)
  Receive Date: 20210726
  Receipt Date: 20210726
  Transmission Date: 20211014
  Serious: No
  Sender: FDA-Public Use
  Company Number: None

PATIENT
  Age: 75 Year
  Sex: Male

DRUGS (1)
  1. PEMBROLIZUMAB (PEMBROLIZUMAB 50MG/VIL INJ) [Suspect]
     Active Substance: PEMBROLIZUMAB
     Indication: LUNG NEOPLASM MALIGNANT
     Route: 042
     Dates: start: 20201203, end: 20210430

REACTIONS (4)
  - Tubulointerstitial nephritis [None]
  - Drug hypersensitivity [None]
  - Nephritis allergic [None]
  - Acute kidney injury [None]

NARRATIVE: CASE EVENT DATE: 20210514
